FAERS Safety Report 5589304-7 (Version None)
Quarter: 2008Q1

REPORT INFORMATION
  Report Type: 
  Country: None (occurrence: None)
  Receive Date: 20080109
  Receipt Date: 20080109
  Transmission Date: 20080703
  Serious: No
  Sender: FDA-Public Use
  Company Number: None

PATIENT
  Sex: Male
  Weight: 1.7 kg

DRUGS (1)
  1. HYALURONIDASE [Suspect]
     Indication: INFUSION SITE EXTRAVASATION
     Dosage: 1 ML = 150 UNITS X 1 SQ PER NEOFAX 2006
     Route: 058
     Dates: start: 20071127

REACTIONS (4)
  - CATHETER SITE HAEMATOMA [None]
  - IMPAIRED HEALING [None]
  - INFUSION SITE ERYTHEMA [None]
  - INFUSION SITE SWELLING [None]
